FAERS Safety Report 10144996 (Version 2)
Quarter: 2014Q2

REPORT INFORMATION
  Report Type: Report from Study
  Country: FR (occurrence: FR)
  Receive Date: 20140501
  Receipt Date: 20140501
  Transmission Date: 20141212
  Serious: Yes (Hospitalization)
  Sender: FDA-Public Use
  Company Number: FR-ROCHE-GNE252055

PATIENT
  Age: 23 Year
  Sex: Male

DRUGS (9)
  1. SOMATROPIN [Suspect]
     Indication: GROWTH HORMONE DEFICIENCY
     Dosage: 0.4 MG, QD
     Route: 058
     Dates: start: 20061113
  2. TESTOSTERONE [Suspect]
     Indication: HYPOPITUITARISM
     Route: 028
     Dates: end: 200704
  3. LEVOTHYROX [Concomitant]
     Indication: THYROID DISORDER
     Route: 048
  4. HYDROCORTISONE [Concomitant]
     Indication: HYPOPITUITARISM
     Route: 048
  5. MINIRIN [Concomitant]
     Indication: HYPOPITUITARISM
     Route: 045
  6. STEROGYL [Concomitant]
     Indication: HYPOPITUITARISM
     Route: 048
  7. TRILEPTAL [Concomitant]
     Indication: EPILEPSY
     Dosage: 1200 MG, QD
     Route: 048
  8. ZONEGRAN [Concomitant]
     Indication: EPILEPSY
     Dosage: 200 MG, QD
     Route: 048
  9. URBANYL [Concomitant]
     Indication: PRODUCT USED FOR UNKNOWN INDICATION
     Dosage: 20 MG, UNK
     Route: 048

REACTIONS (2)
  - Aggression [Recovered/Resolved]
  - Nervousness [Recovered/Resolved]
